FAERS Safety Report 6359011-1 (Version None)
Quarter: 2009Q3

REPORT INFORMATION
  Report Type: 
  Country: None (occurrence: None)
  Receive Date: 20090917
  Receipt Date: 20090909
  Transmission Date: 20100115
  Serious: Yes (Other)
  Sender: FDA-Public Use
  Company Number: HK-JNJCH-2009024452

PATIENT
  Sex: Female

DRUGS (1)
  1. LISTERINE ANTISEPTIC MOUTHWASH [Suspect]
     Indication: DRUG USE FOR UNKNOWN INDICATION
     Dosage: TEXT:20ML MORNING AND NIGHT
     Route: 048

REACTIONS (3)
  - EATING DISORDER [None]
  - MOUTH ULCERATION [None]
  - ORAL PAIN [None]
